FAERS Safety Report 10158587 (Version 2)
Quarter: 2014Q2

REPORT INFORMATION
  Report Type: Spontaneous
  Country: JP (occurrence: JP)
  Receive Date: 20140508
  Receipt Date: 20140602
  Transmission Date: 20141212
  Serious: Yes (Hospitalization)
  Sender: FDA-Public Use
  Company Number: JP-JNJFOC-20140501357

PATIENT
  Age: 63 Year
  Sex: Male

DRUGS (3)
  1. MINOXIDIL 5% [Suspect]
     Route: 061
  2. MINOXIDIL 5% [Suspect]
     Indication: ANDROGENETIC ALOPECIA
     Route: 061
     Dates: start: 2013
  3. UNKNOWN ANTIHYPERTENSIVE DRUG [Concomitant]
     Indication: HYPERTENSION
     Route: 065
     Dates: start: 20140310

REACTIONS (2)
  - Cerebral infarction [Recovering/Resolving]
  - Headache [Recovering/Resolving]
